FAERS Safety Report 9557821 (Version 2)
Quarter: 2013Q4

REPORT INFORMATION
  Report Type: Spontaneous
  Country: JP (occurrence: JP)
  Receive Date: 20130926
  Receipt Date: 20131004
  Transmission Date: 20140711
  Serious: Yes (Hospitalization)
  Sender: FDA-Public Use
  Company Number: JP-JNJFOC-20130911834

PATIENT
  Age: 63 Year
  Sex: Female

DRUGS (3)
  1. REMICADE [Suspect]
     Indication: COLITIS ULCERATIVE
     Route: 042
     Dates: start: 20130216
  2. AZANIN [Suspect]
     Indication: COLITIS ULCERATIVE
     Route: 065
     Dates: start: 20130108, end: 2013
  3. ASACOL [Suspect]
     Indication: COLITIS ULCERATIVE
     Route: 065
     Dates: start: 201207

REACTIONS (3)
  - Febrile neutropenia [Recovering/Resolving]
  - Colitis ulcerative [Unknown]
  - Platelet count decreased [Recovering/Resolving]
